FAERS Safety Report 7326736-0 (Version None)
Quarter: 2011Q1

REPORT INFORMATION
  Report Type: 
  Country: None (occurrence: None)
  Receive Date: 20110302
  Receipt Date: 20100201
  Transmission Date: 20110831
  Serious: No
  Sender: FDA-Public Use
  Company Number: US-PFIZER INC-2010004928

PATIENT
  Sex: Female

DRUGS (1)
  1. VFEND [Suspect]
     Dosage: UNK
     Route: 042
     Dates: start: 20090801

REACTIONS (4)
  - PRURITUS [None]
  - INJECTION SITE RASH [None]
  - INFUSION SITE ERYTHEMA [None]
  - NAUSEA [None]
